FAERS Safety Report 17799339 (Version 1)
Quarter: 2020Q2

REPORT INFORMATION
  Report Type: Spontaneous
  Country: DE (occurrence: DE)
  Receive Date: 20200518
  Receipt Date: 20200518
  Transmission Date: 20200714
  Serious: Yes (Death)
  Sender: FDA-Public Use
  Company Number: NVSC2020DE134433

PATIENT
  Age: 26 Year
  Sex: Male
  Weight: 85 kg

DRUGS (6)
  1. MORPHINSULFAT ABZ [Suspect]
     Active Substance: MORPHINE SULFATE
     Indication: DRUG DEPENDENCE
     Dosage: 1 OT, QD
     Route: 048
     Dates: start: 20180831
  2. PROSPAN [Concomitant]
     Active Substance: IVY EXTRACT
     Indication: PRODUCT USED FOR UNKNOWN INDICATION
     Dosage: COUGH LIQUID
     Route: 065
     Dates: start: 20190919, end: 20190924
  3. PANTOPRAZOL [Concomitant]
     Active Substance: PANTOPRAZOLE SODIUM
     Indication: PRODUCT USED FOR UNKNOWN INDICATION
     Dosage: UNK
     Route: 065
     Dates: start: 20190917, end: 20190920
  4. CLARITHROMYCIN. [Concomitant]
     Active Substance: CLARITHROMYCIN
     Indication: PRODUCT USED FOR UNKNOWN INDICATION
     Dosage: UNK
     Route: 065
     Dates: start: 20190917, end: 20190917
  5. CLINDAMYCIN. [Concomitant]
     Active Substance: CLINDAMYCIN
     Indication: PRODUCT USED FOR UNKNOWN INDICATION
     Dosage: UNK
     Route: 065
     Dates: start: 20190918, end: 20190920
  6. QUETIAPINE. [Suspect]
     Active Substance: QUETIAPINE
     Indication: SCHIZOAFFECTIVE DISORDER
     Dosage: 1 OT, QD
     Route: 048
     Dates: start: 20180824

REACTIONS (4)
  - Poisoning [Fatal]
  - Drug screen positive [Unknown]
  - Urine alcohol test positive [Unknown]
  - Fall [Fatal]

NARRATIVE: CASE EVENT DATE: 20200221
